FAERS Safety Report 9015302 (Version 1)
Quarter: 2013Q1

REPORT INFORMATION
  Report Type: Spontaneous
  Country: US (occurrence: None)
  Receive Date: 20130103
  Receipt Date: 20130103
  Transmission Date: 20140127
  Serious: Yes (Hospitalization)
  Sender: FDA-Public Use
  Company Number: KAD201212-000523

PATIENT
  Age: 58 Year
  Sex: Male

DRUGS (5)
  1. RIBAVIRIN (RIBAVIRIN) [Suspect]
     Indication: HEPATITIS C
     Route: 048
  2. PEGYLATED INTERFERON ALFA-2B (PEGYLATED INTERFERON ALFA-2B) [Suspect]
     Indication: HEPATITIS C
     Route: 058
  3. VITAMIN D [Concomitant]
  4. ACETAMINOPHEN [Concomitant]
  5. SILDENAFIL [Concomitant]

REACTIONS (14)
  - Catatonia [None]
  - Pancytopenia [None]
  - Depression [None]
  - Tremor [None]
  - Anxiety [None]
  - Restlessness [None]
  - Agitation [None]
  - Irritability [None]
  - Alanine aminotransferase increased [None]
  - Aspartate aminotransferase increased [None]
  - Musculoskeletal stiffness [None]
  - Mutism [None]
  - Stupor [None]
  - Posture abnormal [None]
